FAERS Safety Report 15255129 (Version 1)
Quarter: 2018Q3

REPORT INFORMATION
  Report Type: Spontaneous
  Country: US (occurrence: US)
  Receive Date: 20180808
  Receipt Date: 20180808
  Transmission Date: 20181010
  Serious: No
  Sender: FDA-Public Use
  Company Number: US-PFIZER INC-2018317166

PATIENT
  Age: 60 Year
  Sex: Male
  Weight: 95.25 kg

DRUGS (1)
  1. GABAPENTIN. [Suspect]
     Active Substance: GABAPENTIN
     Indication: PAIN
     Dosage: FROM 900MG TO 1200MG A DAY

REACTIONS (5)
  - Feeling abnormal [Unknown]
  - Laboratory test abnormal [Unknown]
  - Product use in unapproved indication [Unknown]
  - Somnolence [Unknown]
  - Drug effect incomplete [Unknown]
